FAERS Safety Report 6795706-3 (Version None)
Quarter: 2010Q2

REPORT INFORMATION
  Report Type: 
  Country: None (occurrence: None)
  Receive Date: 20100622
  Receipt Date: 20100608
  Transmission Date: 20101027
  Serious: Yes (Hospitalization)
  Sender: FDA-Public Use
  Company Number: DSM-2010-00861

PATIENT
  Age: 51 Year
  Sex: Male

DRUGS (1)
  1. SEVIKAR(OLMESARTAN MEDOXOMIL, AMLODIPINE BESILATE)(TABLET)(OLMESARTAN [Suspect]
     Indication: HYPERTENSION
     Dosage: 40/10 MG (1 IN 1 D), ORAL
     Route: 048
     Dates: start: 20100427, end: 20100512

REACTIONS (3)
  - ATRIAL FIBRILLATION [None]
  - HYPOTENSION [None]
  - INFLAMMATION [None]
